FAERS Safety Report 5512246-X (Version None)
Quarter: 2007Q4

REPORT INFORMATION
  Report Type: 
  Country: None (occurrence: None)
  Receive Date: 20071108
  Receipt Date: 20071108
  Transmission Date: 20080405
  Serious: Yes (Other)
  Sender: FDA-Public Use
  Company Number: None

PATIENT
  Age: 71 Year
  Sex: Male

DRUGS (1)
  1. SERTRALINE [Suspect]
     Indication: MAJOR DEPRESSION
     Dosage: ZOLOFT 150MG TAPER TO ZOLOFT 25MG
     Dates: start: 20070912, end: 20070925

REACTIONS (3)
  - AGITATION [None]
  - DELIRIUM [None]
  - PSYCHOTIC DISORDER [None]
